FAERS Safety Report 19242588 (Version 3)
Quarter: 2022Q2

REPORT INFORMATION
  Report Type: Spontaneous
  Country: US (occurrence: US)
  Receive Date: 20210511
  Receipt Date: 20220414
  Transmission Date: 20220721
  Serious: No
  Sender: FDA-Public Use
  Company Number: US-PFIZER INC-2021481198

PATIENT
  Age: 73 Year
  Sex: Male

DRUGS (2)
  1. XELJANZ XR [Suspect]
     Active Substance: TOFACITINIB CITRATE
     Indication: Psoriatic arthropathy
     Dosage: 11 MG
     Dates: end: 2019
  2. XELJANZ XR [Suspect]
     Active Substance: TOFACITINIB CITRATE
     Dosage: 11 MG, DAILY
     Route: 048
     Dates: start: 20210429

REACTIONS (16)
  - Osteoporosis [Unknown]
  - Oropharyngeal pain [Recovering/Resolving]
  - Malaise [Unknown]
  - Diarrhoea [Unknown]
  - Asthenia [Unknown]
  - Pain [Unknown]
  - Discouragement [Unknown]
  - Depressed mood [Unknown]
  - Mental status changes [Unknown]
  - Aggression [Unknown]
  - Peripheral swelling [Recovering/Resolving]
  - Movement disorder [Recovering/Resolving]
  - Behaviour disorder [Unknown]
  - Anger [Unknown]
  - Intermittent explosive disorder [Unknown]
  - Confusional state [Unknown]

NARRATIVE: CASE EVENT DATE: 20210101
